FAERS Safety Report 15853237 (Version 1)
Quarter: 2019Q1

REPORT INFORMATION
  Report Type: Spontaneous
  Country: US (occurrence: US)
  Receive Date: 20190119
  Receipt Date: 20190119
  Transmission Date: 20190417
  Serious: Yes (Other)
  Sender: FDA-Public Use
  Company Number: None

PATIENT
  Age: 89 Year
  Sex: Female
  Weight: 137 kg

DRUGS (4)
  1. SYNTHROID [Concomitant]
     Active Substance: LEVOTHYROXINE SODIUM
     Dates: start: 20150101, end: 20190119
  2. PROCRIT 10,000 UNIT [Concomitant]
     Dates: start: 20160101, end: 20190119
  3. ROSUVASTATIN 40 MG TABS [Concomitant]
     Active Substance: ROSUVASTATIN
     Dates: start: 20150101, end: 20190119
  4. AMLODIPINE-VALSARTAN [Suspect]
     Active Substance: AMLODIPINE\VALSARTAN
     Indication: BLOOD PRESSURE MEASUREMENT
     Route: 048
     Dates: start: 20180927, end: 20190118

REACTIONS (3)
  - Recalled product administered [None]
  - Feeling abnormal [None]
  - Anaemia [None]

NARRATIVE: CASE EVENT DATE: 20181201
